FAERS Safety Report 4845249-9 (Version None)
Quarter: 2005Q4

REPORT INFORMATION
  Report Type: 
  Country: None (occurrence: None)
  Receive Date: 20051125
  Receipt Date: 20051114
  Transmission Date: 20060501
  Serious: Yes (Other)
  Sender: FDA-Public Use
  Company Number: 2005055438

PATIENT
  Age: 82 Year
  Sex: Male

DRUGS (7)
  1. NEURONTIN [Suspect]
     Indication: RESTLESS LEGS SYNDROME
     Dosage: 1200 MG (300 MG, 4 IN 1 D), ORAL
     Route: 048
     Dates: start: 20000101
  2. NEXIUM [Concomitant]
  3. ZOCOR [Concomitant]
  4. TERAZOSIN (TERAZOSIN) [Concomitant]
  5. ASPIRIN [Concomitant]
  6. TOPROL (METOPROLOL) [Concomitant]
  7. ACETAMINOPHEN [Concomitant]

REACTIONS (4)
  - BACK PAIN [None]
  - DIFFICULTY IN WALKING [None]
  - LUMBAR SPINAL STENOSIS [None]
  - POST PROCEDURAL COMPLICATION [None]
